FAERS Safety Report 17799510 (Version 1)
Quarter: 2020Q2

REPORT INFORMATION
  Report Type: Spontaneous
  Country: US (occurrence: US)
  Receive Date: 20200518
  Receipt Date: 20200518
  Transmission Date: 20200714
  Serious: No
  Sender: FDA-Public Use
  Company Number: US-THERAPEUTICSMD-2020TMD00659

PATIENT
  Age: 51 Year
  Sex: Female
  Weight: 60.32 kg

DRUGS (2)
  1. BIJUVA [Suspect]
     Active Substance: ESTRADIOL\PROGESTERONE
     Indication: MENOPAUSE
     Dosage: 1 CAPSULES, 1X/DAY, NIGHTLY
     Route: 048
     Dates: start: 201909, end: 20200203
  2. FLUOXETINE [Concomitant]
     Active Substance: FLUOXETINE HYDROCHLORIDE

REACTIONS (10)
  - Yellow skin [Not Recovered/Not Resolved]
  - Pruritus [Not Recovered/Not Resolved]
  - Eye swelling [Not Recovered/Not Resolved]
  - Off label use [Recovered/Resolved]
  - Fatigue [Not Recovered/Not Resolved]
  - Asthenia [Not Recovered/Not Resolved]
  - Abdominal pain upper [Not Recovered/Not Resolved]
  - Hypothyroidism [Not Recovered/Not Resolved]
  - Blood iron increased [Not Recovered/Not Resolved]
  - Swelling face [Not Recovered/Not Resolved]

NARRATIVE: CASE EVENT DATE: 201909
